FAERS Safety Report 5950536-7 (Version None)
Quarter: 2008Q4

REPORT INFORMATION
  Report Type: 
  Country: None (occurrence: None)
  Receive Date: 20081022
  Receipt Date: 20080728
  Transmission Date: 20090506
  Serious: No
  Sender: FDA-Public Use
  Company Number: SPV1-2008-01597

PATIENT
  Age: 5 Year
  Sex: Male
  Weight: 24.5 kg

DRUGS (2)
  1. VYVANSE [Suspect]
     Indication: ATTENTION DEFICIT/HYPERACTIVITY DISORDER
     Dosage: 30 MG, 1X/DAY:QD, ORAL
     Route: 048
     Dates: start: 20080726, end: 20080726
  2. TENEX [Concomitant]

REACTIONS (5)
  - COMPULSIONS [None]
  - EMOTIONAL DISORDER [None]
  - INSOMNIA [None]
  - LOGORRHOEA [None]
  - OFF LABEL USE [None]
